FAERS Safety Report 9527465 (Version 2)
Quarter: 2013Q3

REPORT INFORMATION
  Report Type: Spontaneous
  Country: US (occurrence: US)
  Receive Date: 20130917
  Receipt Date: 20130924
  Transmission Date: 20140515
  Serious: No
  Sender: FDA-Public Use
  Company Number: US-009507513-1309USA004347

PATIENT
  Age: 25 Year
  Sex: Male

DRUGS (2)
  1. PROPECIA [Suspect]
     Dosage: UNK
     Route: 048
  2. FINASTERIDE [Suspect]
     Dosage: UNK
     Route: 048
     Dates: start: 201303

REACTIONS (1)
  - Alopecia [Unknown]
